FAERS Safety Report 14475086 (Version 1)
Quarter: 2018Q1

REPORT INFORMATION
  Report Type: Spontaneous
  Country: US (occurrence: US)
  Receive Date: 20180131
  Receipt Date: 20180131
  Transmission Date: 20180509
  Serious: No
  Sender: FDA-Public Use
  Company Number: None

PATIENT
  Sex: Male
  Weight: 22.5 kg

DRUGS (3)
  1. MONTELUKAST [Suspect]
     Active Substance: MONTELUKAST SODIUM
     Indication: MULTIPLE ALLERGIES
     Dosage: AT BEDTIME
     Route: 048
     Dates: end: 20171115
  2. CHILDRENS CLARITIN NOSE SPRAY [Concomitant]
  3. MONTELUKAST [Suspect]
     Active Substance: MONTELUKAST SODIUM
     Indication: ASTHMA
     Dosage: AT BEDTIME
     Route: 048
     Dates: end: 20171115

REACTIONS (3)
  - Abnormal behaviour [None]
  - Abnormal dreams [None]
  - Speech disorder [None]
